FAERS Safety Report 9783204 (Version 1)
Quarter: 2013Q4

REPORT INFORMATION
  Report Type: Spontaneous
  Country: US (occurrence: None)
  Receive Date: 20131223
  Receipt Date: 20131223
  Transmission Date: 20140711
  Serious: Yes (Other)
  Sender: FDA-Public Use
  Company Number: EUS-2012-00196

PATIENT
  Age: 10 Year
  Sex: Male

DRUGS (2)
  1. ERWINASE (ASPARAGINASE) [Suspect]
     Indication: ACUTE LYMPHOCYTIC LEUKAEMIA
     Dosage: 18750 IU, 4, 6, 10, 12, 15 AND 17 DEC 2007
     Route: 030
     Dates: start: 20071204, end: 20071217
  2. PREDNISONE [Concomitant]

REACTIONS (5)
  - Hypersensitivity [None]
  - Subarachnoid haemorrhage [None]
  - Prothrombin time prolonged [None]
  - Activated partial thromboplastin time prolonged [None]
  - Blood fibrinogen increased [None]
